FAERS Safety Report 9778557 (Version 1)
Quarter: 2013Q4

REPORT INFORMATION
  Report Type: Spontaneous
  Country: US (occurrence: None)
  Receive Date: 20131220
  Receipt Date: 20131220
  Transmission Date: 20140711
  Serious: Yes (Hospitalization)
  Sender: FDA-Public Use
  Company Number: None

PATIENT
  Age: 72 Year
  Sex: Male
  Weight: 112.7 kg

DRUGS (2)
  1. PIPERACILLIN/TAZOBACTAM [Suspect]
     Route: 042
     Dates: start: 20131002, end: 20131030
  2. VANCOMYCIN [Suspect]
     Route: 042
     Dates: start: 20131001, end: 20131001

REACTIONS (1)
  - Hypersensitivity vasculitis [None]
